FAERS Safety Report 7359569-X (Version None)
Quarter: 2011Q1

REPORT INFORMATION
  Report Type: 
  Country: None (occurrence: None)
  Receive Date: 20110317
  Receipt Date: 20100406
  Transmission Date: 20110831
  Serious: No
  Sender: FDA-Public Use
  Company Number: US-PFIZER INC-2010044192

PATIENT
  Sex: Male
  Weight: 108.84 kg

DRUGS (2)
  1. LEVETIRACETAM [Concomitant]
     Dosage: UNK
  2. NORVASC [Suspect]
     Indication: BLOOD PRESSURE ABNORMAL
     Dosage: 5 MG, ONCE DAILY
     Route: 048
     Dates: start: 20100405

REACTIONS (1)
  - INSOMNIA [None]
